FAERS Safety Report 6721759-4 (Version None)
Quarter: 2010Q2

REPORT INFORMATION
  Report Type: 
  Country: None (occurrence: None)
  Receive Date: 20100512
  Receipt Date: 20100506
  Transmission Date: 20101027
  Serious: Yes (Life-Threatening)
  Sender: FDA-Public Use
  Company Number: JP-ROCHE-685432

PATIENT
  Sex: Female
  Weight: 35 kg

DRUGS (9)
  1. TOCILIZUMAB [Suspect]
     Indication: RHEUMATOID ARTHRITIS
     Route: 041
     Dates: start: 20091021, end: 20091021
  2. TOCILIZUMAB [Suspect]
     Route: 041
     Dates: start: 20091118, end: 20091118
  3. TOCILIZUMAB [Suspect]
     Route: 041
     Dates: start: 20091217, end: 20091217
  4. TOCILIZUMAB [Suspect]
     Route: 041
     Dates: start: 20100113, end: 20100113
  5. TOCILIZUMAB [Suspect]
     Route: 041
     Dates: start: 20100210, end: 20100210
  6. TOCILIZUMAB [Suspect]
     Route: 041
     Dates: start: 20100310, end: 20100310
  7. TOCILIZUMAB [Suspect]
     Route: 041
     Dates: start: 20100417
  8. LOXONIN [Concomitant]
     Dosage: FORM: PERORAL AGENT
     Route: 048
  9. APLACE [Concomitant]
     Dosage: FORM: PERORAL AGENT
     Route: 048

REACTIONS (4)
  - HEPATIC FUNCTION ABNORMAL [None]
  - HYPERLIPIDAEMIA [None]
  - LOSS OF CONSCIOUSNESS [None]
  - NEUTROPHIL COUNT DECREASED [None]
